FAERS Safety Report 6784983-0 (Version None)
Quarter: 2010Q2

REPORT INFORMATION
  Report Type: 
  Country: None (occurrence: None)
  Receive Date: 20100618
  Receipt Date: 20100609
  Transmission Date: 20101027
  Serious: Yes (Other)
  Sender: FDA-Public Use
  Company Number: 2010SP033310

PATIENT
  Age: 70 Year
  Sex: Female

DRUGS (19)
  1. CLARITIN [Suspect]
     Indication: RHINITIS ALLERGIC
     Dosage: 10 MG; ; PO
     Route: 048
     Dates: start: 20090312, end: 20090423
  2. PIRESPA (OTEHR RESPIRATORY SYSTEM PRODUCTS) [Suspect]
     Indication: IDIOPATHIC PULMONARY FIBROSIS
     Dosage: 600 MG; TID; PO, 1200 MG; TID; PO, 1800 MG; TID; PO
     Route: 048
     Dates: start: 20090202, end: 20090215
  3. PIRESPA (OTEHR RESPIRATORY SYSTEM PRODUCTS) [Suspect]
     Indication: IDIOPATHIC PULMONARY FIBROSIS
     Dosage: 600 MG; TID; PO, 1200 MG; TID; PO, 1800 MG; TID; PO
     Route: 048
     Dates: start: 20090216, end: 20090301
  4. PIRESPA (OTEHR RESPIRATORY SYSTEM PRODUCTS) [Suspect]
     Indication: IDIOPATHIC PULMONARY FIBROSIS
     Dosage: 600 MG; TID; PO, 1200 MG; TID; PO, 1800 MG; TID; PO
     Route: 048
     Dates: start: 20090302, end: 20090617
  5. PIRESPA (OTEHR RESPIRATORY SYSTEM PRODUCTS) [Suspect]
     Indication: IDIOPATHIC PULMONARY FIBROSIS
     Dosage: 600 MG; TID; PO, 1200 MG; TID; PO, 1800 MG; TID; PO
     Route: 048
     Dates: start: 20090618
  6. CODEINE PHOSPHATE [Concomitant]
  7. HUSTAGIN (PLANTAGO HERB EXTRACT) [Concomitant]
  8. MAGNESIUM OXIDE [Concomitant]
  9. MUCODYNE [Concomitant]
  10. QVAR 40 [Concomitant]
  11. ACTOS [Concomitant]
  12. SINLESTAL [Concomitant]
  13. TOUCHRON [Concomitant]
  14. NOVORAPID [Concomitant]
  15. LANSOPRAZOLE [Concomitant]
  16. LASIX [Concomitant]
  17. MUCOSOLVAN /00546002/ [Concomitant]
  18. GLYCERIN [Concomitant]
  19. SOL MELCORT [Concomitant]

REACTIONS (1)
  - PNEUMONIA [None]
